FAERS Safety Report 23890842 (Version 1)
Quarter: 2024Q2

REPORT INFORMATION
  Report Type: Report from Study
  Country: KR (occurrence: KR)
  Receive Date: 20240523
  Receipt Date: 20240523
  Transmission Date: 20240716
  Serious: Yes (Death, Other)
  Sender: FDA-Public Use
  Company Number: KR-TAKEDA-2024TUS050527

PATIENT
  Age: 10 Year
  Sex: Female

DRUGS (1)
  1. PROTEIN C [Suspect]
     Active Substance: PROTEIN C
     Indication: Product used for unknown indication
     Dosage: UNK
     Route: 065

REACTIONS (1)
  - Pneumonia [Fatal]
